FAERS Safety Report 6515238-7 (Version None)
Quarter: 2009Q4

REPORT INFORMATION
  Report Type: 
  Country: None (occurrence: None)
  Receive Date: 20091223
  Receipt Date: 20091216
  Transmission Date: 20100525
  Serious: Yes (Death)
  Sender: FDA-Public Use
  Company Number: US-CELGENEUS-163-21880-09100917

PATIENT
  Sex: Female

DRUGS (3)
  1. REVLIMID [Suspect]
     Route: 048
     Dates: start: 20080801
  2. REVLIMID [Suspect]
     Route: 048
     Dates: start: 20080321
  3. REVLIMID [Suspect]
     Route: 048
     Dates: start: 20060701

REACTIONS (13)
  - BLOOD COUNT ABNORMAL [None]
  - CONTUSION [None]
  - DISEASE PROGRESSION [None]
  - DYSPNOEA [None]
  - HOT FLUSH [None]
  - HYPERHIDROSIS [None]
  - LUNG INFECTION [None]
  - MALIGNANT NEOPLASM PROGRESSION [None]
  - MULTIPLE MYELOMA [None]
  - MUSCULAR WEAKNESS [None]
  - NEUTROPENIA [None]
  - PAIN IN EXTREMITY [None]
  - TREMOR [None]
